FAERS Safety Report 8587467 (Version 2)
Quarter: 2012Q4

REPORT INFORMATION
  Report Type: 
  Country: US (occurrence: US)
  Receive Date: 20120531
  Receipt Date: 20120914
  Transmission Date: 20130627
  Serious: Yes (Hospitalization)
  Sender: FDA-Public Use
  Company Number: US-BAYER-2012-052684

PATIENT
  Age: 24 Year
  Sex: Female
  Weight: 83.9 kg

DRUGS (2)
  1. YAZ [Suspect]
     Indication: ACNE
     Dosage: UNK
     Dates: start: 20080724, end: 20090109
  2. YAZ [Suspect]
     Indication: POLYCYSTIC OVARIES

REACTIONS (13)
  - Pulmonary embolism [None]
  - Deep vein thrombosis [None]
  - Arterial occlusive disease [None]
  - Renal infarct [None]
  - Splenic infarction [None]
  - Hepatic infarction [None]
  - Renal failure acute [None]
  - Atrial septal defect [None]
  - Injury [None]
  - Pain [None]
  - Palpitations [None]
  - Dyspnoea [None]
  - Hypoaesthesia [None]
